FAERS Safety Report 11855023 (Version 1)
Quarter: 2015Q4

REPORT INFORMATION
  Report Type: Spontaneous
  Country: AE (occurrence: AE)
  Receive Date: 20151221
  Receipt Date: 20151221
  Transmission Date: 20160305
  Serious: Yes (Hospitalization, Other)
  Sender: FDA-Public Use
  Company Number: AE-BAYER-2015-486610

PATIENT
  Sex: Female
  Weight: 1.69 kg

DRUGS (8)
  1. URSODEOXYCHOLIC ACID [Suspect]
     Active Substance: URSODIOL
     Indication: CHOLESTASIS OF PREGNANCY
     Route: 064
  2. URSODEOXYCHOLIC ACID [Suspect]
     Active Substance: URSODIOL
     Indication: CHOLESTASIS OF PREGNANCY
     Route: 064
  3. CLOPIDOGREL [Suspect]
     Active Substance: CLOPIDOGREL BISULFATE
     Route: 064
  4. CLOPIDOGREL [Suspect]
     Active Substance: CLOPIDOGREL BISULFATE
     Route: 064
  5. LABETALOL [Suspect]
     Active Substance: LABETALOL\LABETALOL HYDROCHLORIDE
     Indication: PRE-ECLAMPSIA
     Route: 064
  6. NIFEDIPINE. [Suspect]
     Active Substance: NIFEDIPINE
     Indication: PRE-ECLAMPSIA
     Route: 064
  7. NIFEDIPINE. [Suspect]
     Active Substance: NIFEDIPINE
     Indication: PRE-ECLAMPSIA
     Route: 064
  8. LABETALOL [Suspect]
     Active Substance: LABETALOL\LABETALOL HYDROCHLORIDE
     Indication: PRE-ECLAMPSIA
     Route: 064

REACTIONS (3)
  - Premature baby [None]
  - Foetal exposure during pregnancy [None]
  - Low birth weight baby [None]
